FAERS Safety Report 21070024 (Version 1)
Quarter: 2022Q3

REPORT INFORMATION
  Report Type: Spontaneous
  Country: AU (occurrence: AU)
  Receive Date: 20220712
  Receipt Date: 20220712
  Transmission Date: 20221027
  Serious: Yes (Hospitalization, Other)
  Sender: FDA-Public Use
  Company Number: AU-LUPIN PHARMACEUTICALS INC.-2022-09350

PATIENT
  Age: 45 Year
  Sex: Female
  Weight: 60 kg

DRUGS (2)
  1. QUETIAPINE FUMARATE [Suspect]
     Active Substance: QUETIAPINE FUMARATE
     Indication: Product used for unknown indication
     Dosage: 4.8 G
     Route: 048
  2. ALCOHOL [Suspect]
     Active Substance: ALCOHOL
     Indication: Product used for unknown indication
     Dosage: UNK, 18 U
     Route: 048

REACTIONS (3)
  - Toxicity to various agents [Unknown]
  - Depressed level of consciousness [Unknown]
  - Overdose [Unknown]
